FAERS Safety Report 6248310-X (Version None)
Quarter: 2009Q2

REPORT INFORMATION
  Report Type: 
  Country: None (occurrence: None)
  Receive Date: 20090629
  Receipt Date: 20090617
  Transmission Date: 20091009
  Serious: Yes (Disabling, Other)
  Sender: FDA-Public Use
  Company Number: PHEH2008US08145

PATIENT
  Sex: Female

DRUGS (3)
  1. AREDIA [Suspect]
     Dosage: 30 MG, UNK
     Dates: start: 20000101
  2. ZOMETA [Suspect]
     Dosage: UNK
  3. ALBUTEROL [Concomitant]

REACTIONS (16)
  - ANAEMIA [None]
  - ANHEDONIA [None]
  - ANXIETY [None]
  - BONE DEBRIDEMENT [None]
  - BONE DISORDER [None]
  - DISABILITY [None]
  - DYSLIPIDAEMIA [None]
  - ENDODONTIC PROCEDURE [None]
  - GASTROOESOPHAGEAL REFLUX DISEASE [None]
  - GENERAL PHYSICAL HEALTH DETERIORATION [None]
  - HYPOTHYROIDISM [None]
  - INJURY [None]
  - OSTEONECROSIS [None]
  - PAIN [None]
  - PURULENT DISCHARGE [None]
  - TOOTH EXTRACTION [None]
